FAERS Safety Report 18111413 (Version 1)
Quarter: 2020Q3

REPORT INFORMATION
  Report Type: Spontaneous
  Country: US (occurrence: US)
  Receive Date: 20200805
  Receipt Date: 20200805
  Transmission Date: 20201103
  Serious: Yes (Other)
  Sender: FDA-Public Use
  Company Number: US-BION-008680

PATIENT
  Age: 82 Year
  Sex: Female
  Weight: 68.49 kg

DRUGS (3)
  1. METOPROLOL. [Concomitant]
     Active Substance: METOPROLOL
     Indication: ATRIAL FIBRILLATION
     Dosage: BY MOUTH, TWICE A DAY, 1 IN THE MORNING AND 1 IN THE EVENING.
  2. DILTIAZEM. [Concomitant]
     Active Substance: DILTIAZEM
     Indication: ATRIAL FIBRILLATION
     Dosage: BY MOUTH, TWICE A DAY, 1 IN THE MORNING AND 1 IN THE EVENING
  3. DOFETILIDE BION PHARMA [Suspect]
     Active Substance: DOFETILIDE
     Indication: ATRIAL FIBRILLATION
     Dosage: 500MCG CAPSULE BY MOUTH, TWICE A DAY, 1 IN MORNING AND 1 IN THE EVENING
     Dates: start: 202003

REACTIONS (2)
  - Product substitution issue [Unknown]
  - Atrial fibrillation [Unknown]

NARRATIVE: CASE EVENT DATE: 202003
